FAERS Safety Report 9973360 (Version 10)
Quarter: 2015Q2

REPORT INFORMATION
  Report Type: Report from Study
  Country: JP (occurrence: JP)
  Receive Date: 20140306
  Receipt Date: 20150507
  Transmission Date: 20150821
  Serious: Yes (Life-Threatening, Hospitalization, Disabling, Other)
  Sender: FDA-Public Use
  Company Number: JP-PFIZER INC-2014058794

PATIENT
  Age: 81 Year
  Sex: Female
  Weight: 58.3 kg

DRUGS (19)
  1. BLOPRESS [Concomitant]
     Active Substance: CANDESARTAN CILEXETIL
     Dosage: 4 MG, 1X/DAY
     Route: 048
  2. UREPEARL [Concomitant]
     Active Substance: UREA
     Dosage: UNK
     Route: 003
  3. DEPAS [Concomitant]
     Active Substance: ETIZOLAM
     Dosage: 0.5 MG, 1X/DAY
     Route: 048
  4. CODEIN [Concomitant]
     Active Substance: CODEINE
     Dosage: 1 G, AS NEEDED
     Route: 048
  5. PANTOSIN [Concomitant]
     Active Substance: PANTETHINE
     Dosage: 200 MG, 1X/DAY
     Route: 048
  6. CRIZOTINIB [Suspect]
     Active Substance: CRIZOTINIB
     Dosage: 250 MG, 1X/DAY
     Route: 048
     Dates: start: 20140509
  7. AZUNOL [Concomitant]
     Active Substance: SODIUM GUALENATE
     Dosage: UNK, AS NEEDED
     Dates: start: 20140224, end: 20140304
  8. LAC B [Concomitant]
     Active Substance: BIFIDOBACTERIUM SPP.
     Dosage: 1 G, 1X/DAY
     Route: 048
  9. AMLODIPINE [Concomitant]
     Active Substance: AMLODIPINE BESYLATE
     Dosage: 5 MG, 1X/DAY
     Route: 048
  10. SILECE [Concomitant]
     Active Substance: FLUNITRAZEPAM
     Dosage: 1 MG, AS NEEDED
     Route: 048
  11. CRIZOTINIB [Suspect]
     Active Substance: CRIZOTINIB
     Indication: NON-SMALL CELL LUNG CANCER
     Dosage: 500 MG, DAILY
     Route: 048
     Dates: start: 20140220, end: 20140226
  12. CRIZOTINIB [Suspect]
     Active Substance: CRIZOTINIB
     Dosage: 200 MG, 2X/DAY
     Route: 048
     Dates: start: 20140402, end: 20140411
  13. PRIMPERAN [Concomitant]
     Active Substance: METOCLOPRAMIDE HYDROCHLORIDE
     Dosage: 5 MG, AS NEEDED
     Route: 048
     Dates: start: 20140219, end: 20140226
  14. RHYTHMY [Concomitant]
     Active Substance: RILMAZAFONE HYDROCHLORIDE
     Dosage: 1 MG, AS NEEDED
     Route: 048
     Dates: start: 20140219, end: 20140304
  15. ZANTAC [Concomitant]
     Active Substance: RANITIDINE HYDROCHLORIDE
     Dosage: 150 MG, 1X/DAY
     Route: 048
  16. VOALLA [Concomitant]
     Dosage: UNK, AS NEEDED
  17. AZULENE GLUTAMINE [Concomitant]
     Dosage: 0.67 G, 1X/DAY
     Route: 048
  18. DOGMATYL [Concomitant]
     Active Substance: SULPIRIDE
     Dosage: 50 MG, 1X/DAY
     Route: 048
  19. MOHRUS [Concomitant]
     Active Substance: KETOPROFEN
     Dosage: UNK, AS NEEDED

REACTIONS (10)
  - Respiratory failure [Recovered/Resolved]
  - Dyspepsia [Recovered/Resolved]
  - Respiratory failure [Recovered/Resolved]
  - Decreased appetite [Not Recovered/Not Resolved]
  - Neutropenia [Recovered/Resolved]
  - Renal impairment [Not Recovered/Not Resolved]
  - Dyspepsia [Recovered/Resolved]
  - Renal impairment [Recovered/Resolved]
  - Cardiac failure [Recovering/Resolving]
  - Renal impairment [Recovered/Resolved]

NARRATIVE: CASE EVENT DATE: 20140220
